FAERS Safety Report 9611523 (Version 1)
Quarter: 2013Q4

REPORT INFORMATION
  Report Type: Spontaneous
  Country: FR (occurrence: FR)
  Receive Date: 20131010
  Receipt Date: 20131010
  Transmission Date: 20140711
  Serious: Yes (Hospitalization)
  Sender: FDA-Public Use
  Company Number: FR-BRISTOL-MYERS SQUIBB COMPANY-19485598

PATIENT
  Sex: Female

DRUGS (2)
  1. ABILIFY TABS 5 MG [Suspect]
     Indication: BIPOLAR DISORDER
     Route: 048
  2. DEPAKOTE [Concomitant]

REACTIONS (3)
  - Mania [Unknown]
  - Asthenia [Not Recovered/Not Resolved]
  - Fatigue [Not Recovered/Not Resolved]
